FAERS Safety Report 9289096 (Version 1)
Quarter: 2013Q2

REPORT INFORMATION
  Report Type: Spontaneous
  Country: US (occurrence: US)
  Receive Date: 20130514
  Receipt Date: 20130514
  Transmission Date: 20140414
  Serious: No
  Sender: FDA-Public Use
  Company Number: US-OPTIMER PHARMACEUTICALS, INC.-20120029

PATIENT
  Sex: 0

DRUGS (4)
  1. DIFICID [Suspect]
     Indication: CLOSTRIDIAL INFECTION
     Dosage: 200 MG, BID
     Route: 048
     Dates: start: 20120212, end: 20120221
  2. WARFARIN [Concomitant]
     Indication: VENA CAVA THROMBOSIS
     Dosage: 1 MG, QD
     Route: 048
  3. LISINOPRIL [Concomitant]
     Indication: HYPERTENSION
     Dosage: 10 MG, QD
     Route: 048
  4. HALAVEN [Concomitant]
     Indication: BREAST CANCER
     Dosage: UNK

REACTIONS (6)
  - Clostridium difficile infection [Recovering/Resolving]
  - Disease recurrence [Recovering/Resolving]
  - Diarrhoea [Unknown]
  - Pyrexia [Unknown]
  - Blood magnesium decreased [Unknown]
  - Blood potassium decreased [Unknown]
